FAERS Safety Report 5129054-4 (Version None)
Quarter: 2006Q4

REPORT INFORMATION
  Report Type: 
  Country: None (occurrence: None)
  Receive Date: 20061011
  Receipt Date: 20060912
  Transmission Date: 20070319
  Serious: Yes (Other)
  Sender: FDA-Public Use
  Company Number: 2006077201

PATIENT
  Age: 65 Year
  Sex: Female
  Weight: 63.5036 kg

DRUGS (9)
  1. BEXTRA [Suspect]
     Indication: ARTHRITIS
     Dosage: (10 MG, 1 IN 1 D)
     Dates: start: 20020701
  2. VIOXX [Suspect]
     Indication: ILL-DEFINED DISORDER
  3. ASPIRIN [Concomitant]
  4. CELEBREX [Concomitant]
  5. DARVOCET [Concomitant]
  6. MOBIC [Concomitant]
  7. PERCOCET [Concomitant]
  8. TYLENOL W/ CODEINE [Concomitant]
  9. ULTRAM [Concomitant]

REACTIONS (1)
  - CEREBRAL INFARCTION [None]
